FAERS Safety Report 18599872 (Version 1)
Quarter: 2020Q4

REPORT INFORMATION
  Report Type: Spontaneous
  Country: GB (occurrence: GB)
  Receive Date: 20201210
  Receipt Date: 20201210
  Transmission Date: 20210114
  Serious: Yes (Other)
  Sender: FDA-Public Use
  Company Number: GB-TEVA-2020-GB-1856224

PATIENT
  Age: 56 Year
  Sex: Female
  Weight: 61 kg

DRUGS (2)
  1. TEVA UK LEVOTHYROXINE [Suspect]
     Active Substance: LEVOTHYROXINE
     Indication: HYPOTHYROIDISM
     Dosage: 25 MICROGRAM
     Route: 048
     Dates: start: 20201104, end: 20201112
  2. CITALOPRAM HYDROCHLORIDE [Concomitant]
     Active Substance: CITALOPRAM HYDROCHLORIDE

REACTIONS (5)
  - Feeling abnormal [Not Recovered/Not Resolved]
  - Pruritus [Not Recovered/Not Resolved]
  - Swelling face [Not Recovered/Not Resolved]
  - Headache [Not Recovered/Not Resolved]
  - Dizziness [Not Recovered/Not Resolved]

NARRATIVE: CASE EVENT DATE: 20201109
